FAERS Safety Report 5875446-5 (Version None)
Quarter: 2008Q3

REPORT INFORMATION
  Report Type: 
  Country: None (occurrence: None)
  Receive Date: 20080909
  Receipt Date: 20080819
  Transmission Date: 20090109
  Serious: No
  Sender: FDA-Public Use
  Company Number: US-BAYER-200832340NA

PATIENT
  Age: 13 Year
  Sex: Female
  Weight: 59 kg

DRUGS (1)
  1. ULTRAVIST 300 [Suspect]
     Indication: NECK MASS
     Dosage: TOTAL DAILY DOSE: 75 ML
     Route: 042
     Dates: start: 20080819, end: 20080819

REACTIONS (2)
  - NASAL CONGESTION [None]
  - ORAL PRURITUS [None]
